FAERS Safety Report 6466084-4 (Version None)
Quarter: 2009Q4

REPORT INFORMATION
  Report Type: 
  Country: None (occurrence: None)
  Receive Date: 20091201
  Receipt Date: 20091201
  Transmission Date: 20100525
  Serious: Yes (Other)
  Sender: FDA-Public Use
  Company Number: None

PATIENT
  Age: 49 Year
  Sex: Female
  Weight: 81.6475 kg

DRUGS (1)
  1. AVONEX [Suspect]
     Indication: MULTIPLE SCLEROSIS
     Dosage: 30 MCG 1 WEEKLY
     Dates: start: 20091118

REACTIONS (7)
  - ASTHENIA [None]
  - CRYING [None]
  - DELIRIUM [None]
  - FEELING OF BODY TEMPERATURE CHANGE [None]
  - HEADACHE [None]
  - PAIN [None]
  - PYREXIA [None]
